FAERS Safety Report 23237496 (Version 1)
Quarter: 2023Q4

REPORT INFORMATION
  Report Type: Spontaneous
  Country: US (occurrence: US)
  Receive Date: 20231128
  Receipt Date: 20231128
  Transmission Date: 20240110
  Serious: No
  Sender: FDA-Public Use
  Company Number: US-BRIAN CONNER SVP QUALITY AND CHIEF COMPLIANCE OFFICER-2023XER02267

PATIENT
  Age: 5 Decade
  Sex: Male

DRUGS (1)
  1. GVOKE [Suspect]
     Active Substance: GLUCAGON
     Dosage: ON THE UPPER ARM, TOWARDS SIDE

REACTIONS (2)
  - Device breakage [Unknown]
  - No adverse event [Unknown]
